FAERS Safety Report 5486980-4 (Version None)
Quarter: 2007Q4

REPORT INFORMATION
  Report Type: 
  Country: None (occurrence: None)
  Receive Date: 20071012
  Receipt Date: 20071012
  Transmission Date: 20080405
  Serious: Yes (Death, Other)
  Sender: FDA-Public Use
  Company Number: None

PATIENT
  Age: 68 Year
  Sex: Female
  Weight: 45.3597 kg

DRUGS (2)
  1. AMBILIFY 5 MG BRISTOL MYERS SQUIBB ABILITY [Suspect]
     Indication: BIPOLAR DISORDER
     Dosage: 5 MG ONCE, DAILY PO
     Route: 048
     Dates: start: 20040101, end: 20070218
  2. AMBILIFY 5 MG BRISTOL MYERS SQUIBB ABILITY [Suspect]
     Indication: MANIA
     Dosage: 5 MG ONCE, DAILY PO
     Route: 048
     Dates: start: 20040101, end: 20070218

REACTIONS (7)
  - CONFUSIONAL STATE [None]
  - HYPERHIDROSIS [None]
  - INFLUENZA [None]
  - MOVEMENT DISORDER [None]
  - MYOCARDIAL INFARCTION [None]
  - SUDDEN DEATH [None]
  - TREMOR [None]
